FAERS Safety Report 17415014 (Version 1)
Quarter: 2020Q1

REPORT INFORMATION
  Report Type: Spontaneous
  Country: DE (occurrence: DE)
  Receive Date: 20200213
  Receipt Date: 20200213
  Transmission Date: 20200409
  Serious: Yes (Hospitalization, Other)
  Sender: FDA-Public Use
  Company Number: DE-MYLANLABS-2020M1015736

PATIENT
  Age: 15 Year
  Sex: Male

DRUGS (1)
  1. IBUPROFEN. [Suspect]
     Active Substance: IBUPROFEN
     Indication: OROPHARYNGEAL PAIN
     Dosage: UNK

REACTIONS (5)
  - Condition aggravated [Unknown]
  - Circulatory collapse [Recovered/Resolved]
  - Cough [Recovered/Resolved]
  - Coma [Recovered/Resolved]
  - Vomiting [Recovered/Resolved]
